FAERS Safety Report 5808445-X (Version None)
Quarter: 2008Q3

REPORT INFORMATION
  Report Type: 
  Country: None (occurrence: None)
  Receive Date: 20080714
  Receipt Date: 20080709
  Transmission Date: 20090109
  Serious: Yes (Death, Life-Threatening)
  Sender: FDA-Public Use
  Company Number: GB-JNJFOC-20041000553

PATIENT
  Age: 38 Year
  Sex: Male
  Weight: 88 kg

DRUGS (4)
  1. RISPERDAL [Suspect]
     Indication: DELUSIONAL DISORDER, PERSECUTORY TYPE
     Route: 048
  2. LOFEPRAMINE [Suspect]
     Indication: DRUG USE FOR UNKNOWN INDICATION
     Route: 048
  3. SENNA [Concomitant]
     Indication: CONSTIPATION
     Route: 048
  4. COLPERMIN [Concomitant]
     Indication: ABDOMINAL PAIN
     Route: 048

REACTIONS (1)
  - PANCREATITIS NECROTISING [None]
